FAERS Safety Report 16260553 (Version 1)
Quarter: 2019Q2

REPORT INFORMATION
  Report Type: Report from Study
  Country: IT (occurrence: IT)
  Receive Date: 20190501
  Receipt Date: 20190501
  Transmission Date: 20190711
  Serious: Yes (Other)
  Sender: FDA-Public Use
  Company Number: IT-MYLANLABS-2019M1040872

PATIENT
  Age: 75 Year
  Sex: Female

DRUGS (7)
  1. LERCANIDIPINE [Concomitant]
     Active Substance: LERCANIDIPINE
     Dosage: 20 MILLIGRAM
  2. DEURSIL [Concomitant]
     Active Substance: URSODIOL
     Dosage: UNK
  3. KETOPROFEN. [Suspect]
     Active Substance: KETOPROFEN
     Indication: PAIN IN EXTREMITY
     Dosage: 2 DOSAGE FORM, QD
     Route: 048
  4. CARDICOR [Concomitant]
     Active Substance: BISOPROLOL
     Dosage: 2.5 MILLIGRAM
  5. PANTOPRAZOLE SODIUM. [Concomitant]
     Active Substance: PANTOPRAZOLE SODIUM
     Dosage: 40 MILLIGRAM
  6. PRITORPLUS [Concomitant]
     Active Substance: HYDROCHLOROTHIAZIDE\TELMISARTAN
     Dosage: 80 MILLIGRAM
  7. CLOPIDOGREL [Concomitant]
     Active Substance: CLOPIDOGREL BISULFATE
     Dosage: 75 MILLIGRAM

REACTIONS (4)
  - Haematochezia [Recovering/Resolving]
  - Erosive duodenitis [Recovering/Resolving]
  - Abdominal pain upper [Recovering/Resolving]
  - Gastritis erosive [Recovering/Resolving]

NARRATIVE: CASE EVENT DATE: 20181024
